FAERS Safety Report 4480877-4 (Version None)
Quarter: 2004Q4

REPORT INFORMATION
  Report Type: 
  Country: None (occurrence: None)
  Receive Date: 20041019
  Receipt Date: 20041006
  Transmission Date: 20050328
  Serious: Yes (Hospitalization, Disabling, Other)
  Sender: FDA-Public Use
  Company Number: HQWYE651508OCT04

PATIENT
  Age: 24 Year
  Sex: Female
  Weight: 54.48 kg

DRUGS (4)
  1. EFFEXOR XR [Suspect]
     Indication: FIBROMYALGIA
     Dosage: ORAL
     Route: 048
     Dates: end: 20040101
  2. PROAMATINE [Concomitant]
  3. FLORINEF [Concomitant]
  4. UNSPECIFIED CONTRACEPTIVE (UNSPECIFIED CONTRACEPTIVE) [Concomitant]

REACTIONS (5)
  - COORDINATION ABNORMAL [None]
  - DYSSTASIA [None]
  - FALL [None]
  - LOSS OF CONSCIOUSNESS [None]
  - PANIC ATTACK [None]
